FAERS Safety Report 8275099-5 (Version None)
Quarter: 2012Q2

REPORT INFORMATION
  Report Type: 
  Country: None (occurrence: None)
  Receive Date: 20120411
  Receipt Date: 20120404
  Transmission Date: 20120825
  Serious: Yes (Other)
  Sender: FDA-Public Use
  Company Number: US-PFIZER INC-2012086450

PATIENT
  Sex: Male

DRUGS (2)
  1. LYRICA [Suspect]
     Dosage: UNK
  2. NEURONTIN [Suspect]
     Dosage: UNK

REACTIONS (6)
  - LOSS OF CONSCIOUSNESS [None]
  - HEADACHE [None]
  - FALL [None]
  - HYPOAESTHESIA [None]
  - NAUSEA [None]
  - FEELING ABNORMAL [None]
